FAERS Safety Report 10024920 (Version 4)
Quarter: 2014Q3

REPORT INFORMATION
  Report Type: Spontaneous
  Country: US (occurrence: US)
  Receive Date: 20140320
  Receipt Date: 20140923
  Transmission Date: 20150326
  Serious: Yes (Other)
  Sender: FDA-Public Use
  Company Number: US-BAYER-2014-040321

PATIENT
  Age: 23 Year
  Sex: Female
  Weight: 117.1 kg

DRUGS (1)
  1. MIRENA [Suspect]
     Active Substance: LEVONORGESTREL
     Indication: CONTRACEPTION
     Dosage: 20 MCG/24HR, CONT
     Route: 015
     Dates: start: 20130926

REACTIONS (6)
  - Haemorrhage in pregnancy [None]
  - Pregnancy with contraceptive device [Not Recovered/Not Resolved]
  - Device expulsion [None]
  - Drug ineffective [None]
  - Abdominal pain lower [None]
  - Malaise [None]

NARRATIVE: CASE EVENT DATE: 20131120
